FAERS Safety Report 9657748 (Version 2)
Quarter: 2013Q4

REPORT INFORMATION
  Report Type: Report from Study
  Country: US (occurrence: US)
  Receive Date: 20131030
  Receipt Date: 20131030
  Transmission Date: 20140711
  Serious: Yes (Death, Hospitalization)
  Sender: FDA-Public Use
  Company Number: US-PFIZER INC-2013200319

PATIENT
  Age: 56 Year
  Sex: Male
  Weight: 91.16 kg

DRUGS (8)
  1. PD-332,991 [Suspect]
     Indication: OESOPHAGEAL CARCINOMA
     Dosage: 125 MG, DAILY
     Route: 048
     Dates: start: 20130614, end: 20130628
  2. MORPHINE SULFATE [Suspect]
     Dosage: 30 MG, UNK
  3. NEURONTIN [Suspect]
  4. FENTANYL [Suspect]
     Indication: PAIN
     Dosage: 75 MCG/HR PATCH
  5. ZOFRAN [Suspect]
  6. GABAPENTIN [Concomitant]
     Dosage: 300 MG - 2 CAPS
  7. ATENIX [Concomitant]
     Dosage: 1 MG
  8. METHADONE [Concomitant]
     Dosage: 10 MG

REACTIONS (5)
  - Disease progression [Fatal]
  - Oesophageal carcinoma [Fatal]
  - Mental status changes [Unknown]
  - Dehydration [Unknown]
  - Anaemia [Unknown]
